FAERS Safety Report 9768130 (Version 2)
Quarter: 2014Q2

REPORT INFORMATION
  Report Type: Spontaneous
  Country: US (occurrence: US)
  Receive Date: 20131217
  Receipt Date: 20140624
  Transmission Date: 20141212
  Serious: Yes (Hospitalization)
  Sender: FDA-Public Use
  Company Number: US-GLAXOSMITHKLINE-A1052872A

PATIENT
  Age: 57 Year
  Sex: Male

DRUGS (7)
  1. AVANDIA [Suspect]
     Indication: TYPE 2 DIABETES MELLITUS
     Dosage: 4MG TWICE PER DAY
     Route: 048
     Dates: start: 20060414, end: 20070713
  2. UNKNOWN BLOOD PRESSURE MEDICATION [Concomitant]
  3. LIPITOR [Concomitant]
  4. METOPROLOL [Concomitant]
  5. AMITRIPTYLINE [Concomitant]
  6. GLIMEPIRIDE [Concomitant]
  7. HUMALOG [Concomitant]

REACTIONS (11)
  - Cerebrovascular accident [Unknown]
  - Transient ischaemic attack [Not Recovered/Not Resolved]
  - Living in residential institution [Not Recovered/Not Resolved]
  - Confusional state [Unknown]
  - Mobility decreased [Not Recovered/Not Resolved]
  - Delirium [Unknown]
  - Urinary incontinence [Unknown]
  - Headache [Unknown]
  - Gait disturbance [Not Recovered/Not Resolved]
  - Unresponsive to stimuli [Unknown]
  - Impaired self-care [Not Recovered/Not Resolved]
